FAERS Safety Report 14913045 (Version 2)
Quarter: 2018Q3

REPORT INFORMATION
  Report Type: Spontaneous
  Country: NL (occurrence: NL)
  Receive Date: 20180518
  Receipt Date: 20180820
  Transmission Date: 20181010
  Serious: Yes (Life-Threatening, Other)
  Sender: FDA-Public Use
  Company Number: PHHY2017NL055289

PATIENT
  Age: 72 Year
  Sex: Female

DRUGS (3)
  1. METRONIDAZOLE. [Suspect]
     Active Substance: METRONIDAZOLE
     Indication: PANCREATITIS
     Dosage: 500 MG, TID
     Route: 048
  2. METRONIDAZOLE. [Suspect]
     Active Substance: METRONIDAZOLE
     Dosage: 500 MG,TID
     Route: 048
  3. METRONIDAZOLE. [Suspect]
     Active Substance: METRONIDAZOLE
     Dosage: UNK
     Route: 065

REACTIONS (9)
  - Dysarthria [Recovered/Resolved]
  - Speech disorder [Recovered/Resolved]
  - Cerebellar syndrome [Recovered/Resolved]
  - Nuclear magnetic resonance imaging brain abnormal [Recovered/Resolved]
  - Gait disturbance [Recovered/Resolved]
  - Encephalopathy [Recovered/Resolved]
  - Anxiety [Recovered/Resolved]
  - Ataxia [Recovered/Resolved]
  - Toxic encephalopathy [Recovered/Resolved]
